FAERS Safety Report 8564941 (Version 2)
Quarter: 2013Q2

REPORT INFORMATION
  Report Type: Spontaneous
  Country: US (occurrence: US)
  Receive Date: 20120516
  Receipt Date: 20130513
  Transmission Date: 20140414
  Serious: Yes (Hospitalization, Other)
  Sender: FDA-Public Use
  Company Number: US-PFIZER INC-2012115481

PATIENT
  Age: 50 Year
  Sex: Female

DRUGS (2)
  1. GABAPENTIN [Suspect]
     Dosage: 80 CAPSULES OF 300 MG
  2. GABAPENTIN [Suspect]
     Dosage: 25 CAPSULES OF 300 MG

REACTIONS (8)
  - Drug abuse [Unknown]
  - Overdose [Unknown]
  - Posterior reversible encephalopathy syndrome [Recovered/Resolved]
  - Depressed level of consciousness [Unknown]
  - Movement disorder [Unknown]
  - Status epilepticus [Recovered/Resolved]
  - Respiratory depression [Recovered/Resolved]
  - Hypertension [Recovered/Resolved]
